FAERS Safety Report 7954534 (Version 7)
Quarter: 2014Q1

REPORT INFORMATION
  Report Type: Report from Study
  Country: GB (occurrence: GB)
  Receive Date: 20110520
  Receipt Date: 20140205
  Transmission Date: 20141002
  Serious: Yes (Death, Life-Threatening, Hospitalization, Disabling, Other)
  Sender: FDA-Public Use
  Company Number: GB-CELGENEUS-167-21880-11041883

PATIENT
  Age: 58 Year
  Sex: Male
  Weight: 96.2 kg

DRUGS (8)
  1. REVLIMID [Suspect]
     Indication: PLASMA CELL MYELOMA
     Dosage: 25 MILLIGRAM
     Route: 048
     Dates: start: 20110410, end: 20110418
  2. REVLIMID [Suspect]
     Dosage: 25 MILLIGRAM
     Route: 048
     Dates: start: 20110325, end: 20110403
  3. DEXAMETHASONE [Suspect]
     Indication: PLASMA CELL MYELOMA
     Route: 048
     Dates: start: 20110408, end: 20110418
  4. DEXAMETHASONE [Suspect]
     Route: 048
     Dates: start: 20110325, end: 20110328
  5. CYCLOPHOSPHAMID [Suspect]
     Indication: PLASMA CELL MYELOMA
     Route: 048
     Dates: start: 20110401, end: 20110418
  6. CYCLOPHOSPHAMID [Suspect]
     Route: 048
     Dates: start: 20110325, end: 20110401
  7. SEPTRIN [Concomitant]
     Indication: PRODUCT USED FOR UNKNOWN INDICATION
     Route: 065
  8. ANTI-FUNGAL [Concomitant]
     Indication: PRODUCT USED FOR UNKNOWN INDICATION
     Route: 061

REACTIONS (6)
  - Multi-organ failure [Not Recovered/Not Resolved]
  - Plasmacytoma [Fatal]
  - Sepsis [Fatal]
  - Alanine aminotransferase increased [Not Recovered/Not Resolved]
  - Renal impairment [Recovered/Resolved]
  - Flank pain [Recovered/Resolved]
